FAERS Safety Report 11425334 (Version 1)
Quarter: 2015Q3

REPORT INFORMATION
  Report Type: Spontaneous
  Country: DE (occurrence: DE)
  Receive Date: 20150827
  Receipt Date: 20150827
  Transmission Date: 20151125
  Serious: Yes (Other)
  Sender: FDA-Public Use
  Company Number: DE-MYLANLABS-2015M1028291

PATIENT

DRUGS (3)
  1. CISPLATIN. [Suspect]
     Active Substance: CISPLATIN
     Indication: METASTASES TO PERITONEUM
     Dosage: 7.5 MG/M2 BODY SURFACE IN 150ML NACL 0.9%
     Route: 033
  2. FLUOROURACIL. [Suspect]
     Active Substance: FLUOROURACIL
     Indication: METASTASES TO PERITONEUM
     Route: 065
  3. DOXORUBICIN [Suspect]
     Active Substance: DOXORUBICIN
     Indication: METASTASES TO PERITONEUM
     Dosage: 1.5 MG/M2 IN 50ML NACL 0.9%
     Route: 033

REACTIONS (2)
  - Cardiac failure acute [Recovered/Resolved]
  - Intestinal perforation [Recovered/Resolved]
